FAERS Safety Report 9751398 (Version 2)
Quarter: 2014Q2

REPORT INFORMATION
  Report Type: Spontaneous
  Country: US (occurrence: US)
  Receive Date: 20131212
  Receipt Date: 20140414
  Transmission Date: 20141212
  Serious: No
  Sender: FDA-Public Use
  Company Number: US-BIOGENIDEC-2013BI097415

PATIENT
  Age: 79 Year
  Sex: Male
  Weight: 91 kg

DRUGS (14)
  1. TECFIDERA [Suspect]
     Indication: MULTIPLE SCLEROSIS
     Route: 048
     Dates: start: 20130925
  2. TECFIDERA [Suspect]
     Indication: MULTIPLE SCLEROSIS
     Route: 048
  3. TECFIDERA [Suspect]
     Indication: MULTIPLE SCLEROSIS
     Route: 048
     Dates: start: 20131002
  4. TECFIDERA [Suspect]
     Indication: MULTIPLE SCLEROSIS
     Route: 048
  5. TECFIDERA [Suspect]
     Indication: MULTIPLE SCLEROSIS
     Route: 048
  6. TECFIDERA [Suspect]
     Indication: MULTIPLE SCLEROSIS
     Route: 048
  7. METOPROLOL ER [Concomitant]
  8. COUMADIN [Concomitant]
  9. BACLOFEN [Concomitant]
  10. PRAVASTATIN [Concomitant]
  11. FISH OIL [Concomitant]
  12. CENTRUM [Concomitant]
  13. ASPIRIN ADLT [Concomitant]
  14. VITAMIN D [Concomitant]

REACTIONS (8)
  - Fatigue [Unknown]
  - Muscular weakness [Unknown]
  - Pain [Unknown]
  - Flatulence [Unknown]
  - Prescribed underdose [Unknown]
  - Off label use [Not Recovered/Not Resolved]
  - Drug intolerance [Recovered/Resolved]
  - Flushing [Recovered/Resolved]
